FAERS Safety Report 21626825 (Version 1)
Quarter: 2022Q4

REPORT INFORMATION
  Report Type: Report from Study
  Country: US (occurrence: US)
  Receive Date: 20221122
  Receipt Date: 20221122
  Transmission Date: 20230113
  Serious: No
  Sender: FDA-Public Use
  Company Number: US-ABBVIE-22K-163-4370985-00

PATIENT
  Sex: Female

DRUGS (3)
  1. SKYRIZI [Suspect]
     Active Substance: RISANKIZUMAB-RZAA
     Indication: Psoriasis
     Dosage: WEEK 0
     Route: 058
     Dates: start: 20211210, end: 20211210
  2. SKYRIZI [Suspect]
     Active Substance: RISANKIZUMAB-RZAA
     Dosage: WEEK 4
     Route: 058
     Dates: start: 202201, end: 202201
  3. SKYRIZI [Suspect]
     Active Substance: RISANKIZUMAB-RZAA
     Dosage: EVERY 12 WEEKS THEREAFTER/ FORM STRENGTH: 150 MILLIGRAM
     Route: 058
     Dates: start: 202204

REACTIONS (11)
  - Weight increased [Not Recovered/Not Resolved]
  - Therapeutic response unexpected [Recovering/Resolving]
  - Pre-existing condition improved [Recovering/Resolving]
  - Psoriasis [Unknown]
  - Fatigue [Unknown]
  - Eczema [Unknown]
  - Measles [Unknown]
  - Skin burning sensation [Recovered/Resolved]
  - Stress at work [Unknown]
  - Decreased activity [Unknown]
  - Hyperphagia [Unknown]

NARRATIVE: CASE EVENT DATE: 20220101
